FAERS Safety Report 7650257-9 (Version None)
Quarter: 2011Q3

REPORT INFORMATION
  Report Type: 
  Country: None (occurrence: None)
  Receive Date: 20110802
  Receipt Date: 20110725
  Transmission Date: 20111222
  Serious: Yes (Other)
  Sender: FDA-Public Use
  Company Number: TR-ROCHE-792607

PATIENT

DRUGS (4)
  1. FLUOROURACIL [Suspect]
     Dosage: DRUG NAME: 5-FU
     Route: 065
  2. BEVACIZUMAB [Suspect]
     Route: 065
  3. IRINOTECAN HCL [Suspect]
     Route: 065
  4. LEUCOVORIN CALCIUM [Suspect]
     Route: 065

REACTIONS (5)
  - HAEMATOTOXICITY [None]
  - NAUSEA [None]
  - ASTHENIA [None]
  - VOMITING [None]
  - DIARRHOEA [None]
